FAERS Safety Report 9209200 (Version 1)
Quarter: 2013Q1

REPORT INFORMATION
  Report Type: Spontaneous
  Country: US (occurrence: None)
  Receive Date: 20120820
  Receipt Date: 20120820
  Transmission Date: 20140127
  Serious: No
  Sender: FDA-Public Use
  Company Number: 1000031123

PATIENT
  Age: 69 Year
  Sex: Female

DRUGS (2)
  1. VIIBRYD (VILAZODONE)(10 MILLIGRAM, TABLETS) [Suspect]
     Indication: DEPRESSION
     Route: 048
     Dates: start: 20120524, end: 20120530
  2. VIIBRYD (VILAZODONE) [Suspect]
     Route: 048
     Dates: start: 20120531, end: 20120603

REACTIONS (3)
  - Morbid thoughts [None]
  - Feeling abnormal [None]
  - Diarrhoea [None]
